FAERS Safety Report 6836755-6 (Version None)
Quarter: 2010Q3

REPORT INFORMATION
  Report Type: 
  Country: None (occurrence: None)
  Receive Date: 20100708
  Receipt Date: 20100625
  Transmission Date: 20110219
  Serious: Yes (Other)
  Sender: FDA-Public Use
  Company Number: 7009399

PATIENT
  Age: 35 Year
  Sex: Female
  Weight: 43 kg

DRUGS (2)
  1. REBIF [Suspect]
     Indication: MULTIPLE SCLEROSIS
     Dosage: 44 MCG, 3 IN 1WK SUBCUTANEOUS
     Route: 058
     Dates: start: 20090706
  2. NAPRELAN [Concomitant]

REACTIONS (6)
  - ABDOMINAL DISCOMFORT [None]
  - FEELING ABNORMAL [None]
  - HEPATIC ENZYME INCREASED [None]
  - LYMPHOMA [None]
  - MULTIPLE SCLEROSIS RELAPSE [None]
  - WEIGHT DECREASED [None]
